FAERS Safety Report 10695696 (Version 1)
Quarter: 2015Q1

REPORT INFORMATION
  Report Type: Spontaneous
  Country: US (occurrence: US)
  Receive Date: 20150107
  Receipt Date: 20150107
  Transmission Date: 20150721
  Serious: No
  Sender: FDA-Public Use
  Company Number: US-009507513-1412USA005512

PATIENT
  Age: 39 Year
  Sex: Female
  Weight: 45.35 kg

DRUGS (1)
  1. IMPLANON [Suspect]
     Active Substance: ETONOGESTREL
     Dosage: STRENGTH 68 (UNIT NOT PROVIDED)
     Route: 059
     Dates: start: 201110

REACTIONS (5)
  - Incorrect drug administration duration [Unknown]
  - Medical device complication [Not Recovered/Not Resolved]
  - Weight increased [Not Recovered/Not Resolved]
  - Device difficult to use [Not Recovered/Not Resolved]
  - Device deployment issue [Not Recovered/Not Resolved]

NARRATIVE: CASE EVENT DATE: 201110
